FAERS Safety Report 12944452 (Version 1)
Quarter: 2016Q4

REPORT INFORMATION
  Report Type: Spontaneous
  Country: US (occurrence: US)
  Receive Date: 20161115
  Receipt Date: 20161115
  Transmission Date: 20170207
  Serious: Yes (Hospitalization)
  Sender: FDA-Public Use
  Company Number: None

PATIENT
  Age: 58 Year
  Sex: Female
  Weight: 41.5 kg

DRUGS (2)
  1. DOXIL [Suspect]
     Active Substance: DOXORUBICIN HYDROCHLORIDE
     Dates: end: 20161005
  2. CARBOPLATIN. [Suspect]
     Active Substance: CARBOPLATIN
     Dates: end: 20161005

REACTIONS (4)
  - Vomiting [None]
  - Obstruction gastric [None]
  - Nausea [None]
  - Duodenal obstruction [None]

NARRATIVE: CASE EVENT DATE: 20161018
